FAERS Safety Report 8524176 (Version 2)
Quarter: 2012Q4

REPORT INFORMATION
  Report Type: 
  Country: ES (occurrence: ES)
  Receive Date: 20120420
  Receipt Date: 20121011
  Transmission Date: 20130627
  Serious: Yes (Hospitalization, Other)
  Sender: FDA-Public Use
  Company Number: ES-JNJFOC-20120404667

PATIENT
  Age: 19 Year
  Sex: Female
  Weight: 54 kg

DRUGS (1)
  1. INFLIXIMAB, RECOMBINANT [Suspect]
     Indication: IRIDOCYCLITIS
     Dosage: dose reported as 3-5 mg/kg on weeks 0, 2, 6, 8
     Route: 042
     Dates: start: 20060901, end: 20080401

REACTIONS (3)
  - Iridocyclitis [Unknown]
  - Lupus-like syndrome [Recovered/Resolved]
  - Cystoid macular oedema [Unknown]
